FAERS Safety Report 4504166-4 (Version None)
Quarter: 2004Q4

REPORT INFORMATION
  Report Type: 
  Country: None (occurrence: None)
  Receive Date: 20041116
  Receipt Date: 20041116
  Transmission Date: 20050328
  Serious: No
  Sender: FDA-Public Use
  Company Number: None

PATIENT
  Age: 79 Year
  Sex: Male
  Weight: 90.8 kg

DRUGS (1)
  1. FUROSEMIDE [Suspect]

REACTIONS (2)
  - EOSINOPHILIA [None]
  - THROMBOCYTOPENIA [None]
